FAERS Safety Report 10022528 (Version 2)
Quarter: 2014Q3

REPORT INFORMATION
  Report Type: Report from Study
  Country: GB (occurrence: GB)
  Receive Date: 20140319
  Receipt Date: 20140711
  Transmission Date: 20150326
  Serious: Yes (Death)
  Sender: FDA-Public Use
  Company Number: GB-ABBVIE-14P-167-1214084-00

PATIENT
  Age: 70 Year
  Sex: Female

DRUGS (6)
  1. HUMIRA [Suspect]
     Active Substance: ADALIMUMAB
     Indication: RHEUMATOID ARTHRITIS
     Route: 058
     Dates: start: 20070831, end: 20120322
  2. RITUXIMAB [Concomitant]
     Active Substance: RITUXIMAB
     Dates: start: 20130227
  3. LEFLUNOMIDE. [Concomitant]
     Active Substance: LEFLUNOMIDE
     Indication: RHEUMATOID ARTHRITIS
  4. RITUXIMAB [Concomitant]
     Active Substance: RITUXIMAB
     Indication: RHEUMATOID ARTHRITIS
     Dates: start: 20120530
  5. RITUXIMAB [Concomitant]
     Active Substance: RITUXIMAB
     Dates: start: 20120613
  6. RITUXIMAB [Concomitant]
     Active Substance: RITUXIMAB
     Dates: start: 20130206

REACTIONS (1)
  - Lung adenocarcinoma [Fatal]

NARRATIVE: CASE EVENT DATE: 20131010
